FAERS Safety Report 7625511-7 (Version None)
Quarter: 2011Q3

REPORT INFORMATION
  Report Type: 
  Country: None (occurrence: None)
  Receive Date: 20110721
  Receipt Date: 20100827
  Transmission Date: 20111222
  Serious: No
  Sender: FDA-Public Use
  Company Number: US-KINGPHARMUSA00001-K201000834

PATIENT
  Age: 41 Year
  Sex: Female
  Weight: 57.143 kg

DRUGS (2)
  1. SEPTRA [Suspect]
     Indication: INFECTION
     Dosage: UNK, BID
     Route: 048
     Dates: start: 20100607, end: 20100611
  2. VICODIN [Concomitant]
     Indication: PAIN
     Dosage: 5-500 MG, PRN

REACTIONS (10)
  - HYPERSENSITIVITY [None]
  - HEADACHE [None]
  - DECREASED APPETITE [None]
  - ALANINE AMINOTRANSFERASE INCREASED [None]
  - PYREXIA [None]
  - NAUSEA [None]
  - ERYTHEMA [None]
  - ASPARTATE AMINOTRANSFERASE INCREASED [None]
  - URTICARIA [None]
  - TREMOR [None]
